FAERS Safety Report 9575647 (Version 1)
Quarter: 2013Q4

REPORT INFORMATION
  Report Type: Spontaneous
  Country: US (occurrence: US)
  Receive Date: 20131001
  Receipt Date: 20131001
  Transmission Date: 20140711
  Serious: No
  Sender: FDA-Public Use
  Company Number: US-AMGEN-USASP2012084242

PATIENT
  Age: 58 Year
  Sex: Female
  Weight: 56.69 kg

DRUGS (12)
  1. ENBREL [Suspect]
     Indication: RHEUMATOID ARTHRITIS
     Dosage: 50 MG, QWK
     Route: 058
  2. PROZAC [Concomitant]
     Dosage: 20 MG, UNK
     Route: 048
  3. TRAMADOL HCL [Concomitant]
     Dosage: 50 MG, UNK
     Route: 048
  4. BABY ASPIRIN [Concomitant]
     Dosage: 81 MG, UNK
     Route: 048
  5. NORVASC [Concomitant]
     Dosage: 10 MG, UNK
     Route: 048
  6. BENICAR [Concomitant]
     Dosage: 20 MG, UNK
     Route: 048
  7. PLAQUENIL                          /00072602/ [Concomitant]
     Dosage: 200 MG, UNK
     Route: 048
  8. CLONAZEPAM [Concomitant]
     Dosage: 1 MG, UNK
     Route: 048
  9. TRAZODONE [Concomitant]
     Dosage: 50 MG, UNK
     Route: 048
  10. CALCIUM [Concomitant]
     Dosage: UNK,500
     Route: 048
  11. FISH OIL [Concomitant]
     Dosage: UNK
     Route: 048
  12. MULTI [Concomitant]
     Dosage: UNK
     Route: 048

REACTIONS (4)
  - Headache [Unknown]
  - Sinus congestion [Unknown]
  - Laryngitis [Unknown]
  - Cough [Unknown]
